FAERS Safety Report 9995768 (Version 2)
Quarter: 2014Q2

REPORT INFORMATION
  Report Type: Report from Study
  Country: JP (occurrence: JP)
  Receive Date: 20140311
  Receipt Date: 20140520
  Transmission Date: 20141212
  Serious: Yes (Death)
  Sender: FDA-Public Use
  Company Number: JP-SA-2014SA030419

PATIENT
  Sex: Male
  Weight: 48 kg

DRUGS (6)
  1. PLAVIX [Suspect]
     Indication: PERIPHERAL ARTERIAL OCCLUSIVE DISEASE
     Route: 048
     Dates: start: 20130204, end: 20130716
  2. LANSOPRAZOLE [Concomitant]
     Indication: PROPHYLAXIS
     Route: 048
     Dates: end: 20110725
  3. FEBURIC [Concomitant]
     Route: 048
     Dates: end: 20110725
  4. TIZANIDINE HYDROCHLORIDE [Concomitant]
     Indication: MUSCULOSKELETAL DISORDER
     Route: 048
     Dates: end: 20110725
  5. MAINTATE [Concomitant]
     Route: 048
     Dates: end: 20110725
  6. BAYASPIRIN [Concomitant]
     Indication: ANTIPLATELET THERAPY
     Route: 048

REACTIONS (1)
  - Lung neoplasm malignant [Fatal]
